FAERS Safety Report 14244546 (Version 2)
Quarter: 2018Q1

REPORT INFORMATION
  Report Type: Spontaneous
  Country: US (occurrence: US)
  Receive Date: 20171201
  Receipt Date: 20180201
  Transmission Date: 20180508
  Serious: No
  Sender: FDA-Public Use
  Company Number: US-GLAXOSMITHKLINE-US2017183834

PATIENT
  Age: 60 Year
  Sex: Female

DRUGS (1)
  1. TANZEUM [Suspect]
     Active Substance: ALBIGLUTIDE
     Indication: DIABETES MELLITUS
     Dosage: 50 MG, WE
     Route: 058

REACTIONS (3)
  - Wrong technique in device usage process [Unknown]
  - Exposure via skin contact [Unknown]
  - Product quality issue [Unknown]

NARRATIVE: CASE EVENT DATE: 201711
